FAERS Safety Report 8991959 (Version 1)
Quarter: 2012Q4

REPORT INFORMATION
  Report Type: 
  Country: US (occurrence: US)
  Receive Date: 20121231
  Receipt Date: 20121231
  Transmission Date: 20130627
  Serious: No
  Sender: FDA-Public Use
  Company Number: US-009507513-1212USA011152

PATIENT
  Sex: Male

DRUGS (8)
  1. VICTRELIS [Suspect]
     Dosage: 200 mg, take 4 capsules by mouth 3 times a day
     Route: 048
  2. PEGINTRON [Suspect]
     Dosage: 120 microgram/0.5 ml,qw, peg-intron kit  120 RP
     Route: 058
  3. PEGINTRON [Suspect]
     Dosage: UNK
  4. RIBAPAK [Suspect]
     Dosage: 1000/DAY
  5. RIBAPAK [Suspect]
     Dosage: UNK
  6. TIMOLOL MALEATE [Concomitant]
  7. LOVAZA [Concomitant]
     Dosage: 1 g, UNK
  8. TRAVATAN [Concomitant]

REACTIONS (8)
  - Mood swings [Unknown]
  - Balance disorder [Unknown]
  - Visual impairment [Unknown]
  - Pain [Unknown]
  - Chills [Unknown]
  - Fatigue [Unknown]
  - Irritability [Unknown]
  - Dizziness [Unknown]
